FAERS Safety Report 6917079-5 (Version None)
Quarter: 2010Q3

REPORT INFORMATION
  Report Type: 
  Country: None (occurrence: None)
  Receive Date: 20100810
  Receipt Date: 20100803
  Transmission Date: 20110219
  Serious: Yes (Hospitalization)
  Sender: FDA-Public Use
  Company Number: A0874681A

PATIENT
  Age: 62 Year
  Sex: Male

DRUGS (2)
  1. AVANDIA [Suspect]
     Dosage: 4MG PER DAY
     Route: 048
     Dates: start: 20000831, end: 20081218
  2. AVANDARYL [Suspect]
     Route: 048
     Dates: start: 20070125, end: 20081218

REACTIONS (2)
  - ACUTE MYOCARDIAL INFARCTION [None]
  - SUBDURAL HAEMATOMA [None]
